FAERS Safety Report 23711582 (Version 5)
Quarter: 2024Q2

REPORT INFORMATION
  Report Type: Spontaneous
  Country: US (occurrence: US)
  Receive Date: 20240405
  Receipt Date: 20240619
  Transmission Date: 20240716
  Serious: Yes (Hospitalization)
  Sender: FDA-Public Use
  Company Number: US-GILEAD-2024-0668337

PATIENT
  Age: 68 Year
  Sex: Male
  Weight: 63.946 kg

DRUGS (13)
  1. LENACAPAVIR [Suspect]
     Active Substance: LENACAPAVIR
     Indication: HIV infection
     Dosage: 600 MG, QD
     Route: 048
     Dates: start: 20240327, end: 20240329
  2. LENACAPAVIR [Suspect]
     Active Substance: LENACAPAVIR
     Dosage: TAKE 2 TABS BY MOUTH 1 TIME A DAY ON DAY 1 AND DAY 2. BEGIN INJECTABLE DOSE ON DAY 1 THEN EVERY 6MO
     Route: 048
     Dates: start: 202403
  3. LENACAPAVIR [Suspect]
     Active Substance: LENACAPAVIR
     Indication: HIV infection
     Dosage: 927 MG
     Route: 058
     Dates: start: 20240327, end: 20240327
  4. ALLOPURINOL [Concomitant]
     Active Substance: ALLOPURINOL
  5. DESCOVY [Concomitant]
     Active Substance: EMTRICITABINE\TENOFOVIR ALAFENAMIDE FUMARATE
     Dosage: 200/25MG 1 TABLET BY MOUTH 1 TIME A DAY
  6. DOLUTEGRAVIR [Concomitant]
     Active Substance: DOLUTEGRAVIR
  7. ENALAPRIL [Concomitant]
     Active Substance: ENALAPRIL
  8. METFORMIN [Concomitant]
     Active Substance: METFORMIN HYDROCHLORIDE
  9. ROSUVASTATIN [Concomitant]
     Active Substance: ROSUVASTATIN
  10. DORAVIRINE [Concomitant]
     Active Substance: DORAVIRINE
  11. EMPAGLIFLOZIN [Concomitant]
     Active Substance: EMPAGLIFLOZIN
  12. TIVICAY [Concomitant]
     Active Substance: DOLUTEGRAVIR SODIUM
     Dosage: 50MG 1 TABLET BY MOUTH 2 TIMES A DAY
  13. PIFELTRO [Concomitant]
     Active Substance: DORAVIRINE
     Dosage: 100MG 1 TABLET BY MOUTH 1 TIME A DAY

REACTIONS (4)
  - Pain [Recovering/Resolving]
  - Injection site nodule [Recovering/Resolving]
  - Injection site erythema [Recovered/Resolved]
  - Nausea [Recovered/Resolved]

NARRATIVE: CASE EVENT DATE: 20240327
